FAERS Safety Report 23923467 (Version 1)
Quarter: 2024Q2

REPORT INFORMATION
  Report Type: Spontaneous
  Country: GB (occurrence: GB)
  Receive Date: 20240531
  Receipt Date: 20240531
  Transmission Date: 20240716
  Serious: Yes (Hospitalization, Other)
  Sender: FDA-Public Use
  Company Number: None

PATIENT
  Age: 74 Year
  Sex: Male

DRUGS (2)
  1. METHOTREXATE [Suspect]
     Active Substance: METHOTREXATE
     Indication: Rheumatoid arthritis
     Dosage: 12.5 MG, QW
     Route: 065
     Dates: start: 2018, end: 20240429
  2. TRIMETHOPRIM [Suspect]
     Active Substance: TRIMETHOPRIM
     Indication: Urinary tract infection
     Dosage: 200 MG, BID
     Route: 065
     Dates: start: 20240418, end: 20240424

REACTIONS (2)
  - Pancytopenia [Recovered/Resolved]
  - Medication error [Unknown]

NARRATIVE: CASE EVENT DATE: 20240429
